FAERS Safety Report 15851082 (Version 1)
Quarter: 2019Q1

REPORT INFORMATION
  Report Type: Other
  Country: CA (occurrence: CA)
  Receive Date: 20190122
  Receipt Date: 20190122
  Transmission Date: 20190417
  Serious: Yes (Other)
  Sender: FDA-Public Use
  Company Number: CA-GLENMARK PHARMACEUTICALS-2019GMK039334

PATIENT

DRUGS (1)
  1. GABAPENTIN. [Suspect]
     Active Substance: GABAPENTIN
     Indication: NEURALGIA
     Dosage: 600 MG, QID
     Route: 048

REACTIONS (4)
  - Amnesia [Recovering/Resolving]
  - Product use in unapproved indication [Unknown]
  - Tardive dyskinesia [Recovering/Resolving]
  - Speech disorder [Recovering/Resolving]
